FAERS Safety Report 5688751-2 (Version None)
Quarter: 2008Q1

REPORT INFORMATION
  Report Type: 
  Country: None (occurrence: None)
  Receive Date: 20080331
  Receipt Date: 20080124
  Transmission Date: 20080703
  Serious: Yes (Other)
  Sender: FDA-Public Use
  Company Number: DE-BAYER-200811804GPV

PATIENT
  Age: 69 Year

DRUGS (5)
  1. ASPIRIN [Suspect]
     Indication: DRUG USE FOR UNKNOWN INDICATION
     Route: 048
  2. PLAVIX / CLODIPOGRELSULFAT [Concomitant]
     Indication: DRUG USE FOR UNKNOWN INDICATION
  3. CAPTOGAMMA 50 / CAPTOPRIL [Concomitant]
     Indication: DRUG USE FOR UNKNOWN INDICATION
  4. HCT 25 / HYDROCHLOROTHIAZID [Concomitant]
     Indication: DRUG USE FOR UNKNOWN INDICATION
  5. SULTANOL / SALBUTAMOLSULFAT [Concomitant]
     Indication: DRUG USE FOR UNKNOWN INDICATION
     Route: 065

REACTIONS (1)
  - BLOOD URINE PRESENT [None]
